FAERS Safety Report 20819221 (Version 2)
Quarter: 2022Q3

REPORT INFORMATION
  Report Type: Spontaneous
  Country: US (occurrence: US)
  Receive Date: 20220512
  Receipt Date: 20220803
  Transmission Date: 20221027
  Serious: No
  Sender: FDA-Public Use
  Company Number: US-PFIZER INC-202200598269

PATIENT
  Age: 56 Year
  Sex: Female

DRUGS (6)
  1. IBRANCE [Suspect]
     Active Substance: PALBOCICLIB
     Dosage: 75 MG, CYCLIC (FOR 21 DAYS THEN OFF 7 DAYS)
     Route: 048
     Dates: start: 20220218
  2. IBRANCE [Suspect]
     Active Substance: PALBOCICLIB
     Dosage: 75 MG
  3. LETROZOLE [Concomitant]
     Active Substance: LETROZOLE
     Dosage: UNK
  4. CALCIUM [Concomitant]
     Active Substance: CALCIUM
     Dosage: UNK
  5. VITAMIN D3 [Concomitant]
     Active Substance: CHOLECALCIFEROL
     Dosage: UNK
  6. MORPHINE SULFATE [Concomitant]
     Active Substance: MORPHINE SULFATE
     Indication: Pain
     Dosage: UNK

REACTIONS (4)
  - Full blood count abnormal [Unknown]
  - Neoplasm recurrence [Unknown]
  - Thirst [Unknown]
  - Neutrophil count decreased [Unknown]
